FAERS Safety Report 5889196-2 (Version None)
Quarter: 2008Q3

REPORT INFORMATION
  Report Type: 
  Country: None (occurrence: None)
  Receive Date: 20080917
  Receipt Date: 20080909
  Transmission Date: 20090109
  Serious: Yes (Other)
  Sender: FDA-Public Use
  Company Number: TPA2008A01148

PATIENT
  Age: 5 Decade
  Sex: Female

DRUGS (5)
  1. ROZEREM [Suspect]
     Dosage: 8 MG, PER ORAL
     Route: 048
  2. ZOCOR [Concomitant]
  3. MOTRIN [Concomitant]
  4. ANTIHYPERTENSIVE MEDICATION (ANTIHYPERTENSIVES) [Concomitant]
  5. ANTACID (ANTACIDS) [Concomitant]

REACTIONS (2)
  - CHEST PAIN [None]
  - DYSPNOEA [None]
